FAERS Safety Report 20783840 (Version 1)
Quarter: 2022Q2

REPORT INFORMATION
  Report Type: Spontaneous
  Country: AU (occurrence: AU)
  Receive Date: 20220504
  Receipt Date: 20220504
  Transmission Date: 20220720
  Serious: Yes (Other)
  Sender: FDA-Public Use
  Company Number: AU-JUBILANT CADISTA PHARMACEUTICALS-2022JUB00122

PATIENT
  Age: 5 Year
  Sex: Male

DRUGS (2)
  1. MONTELUKAST SODIUM [Suspect]
     Active Substance: MONTELUKAST SODIUM
     Indication: Asthma
     Dosage: UNK
     Route: 065
  2. INHALED CORTICOSTEROIDS [Concomitant]
     Indication: Asthma

REACTIONS (6)
  - Agitation [Recovering/Resolving]
  - Panic attack [Recovering/Resolving]
  - Hallucination, tactile [Recovering/Resolving]
  - Nightmare [Not Recovered/Not Resolved]
  - Hallucination, auditory [Recovering/Resolving]
  - Withdrawal syndrome [Recovering/Resolving]
